FAERS Safety Report 17772612 (Version 2)
Quarter: 2020Q2

REPORT INFORMATION
  Report Type: Spontaneous
  Country: US (occurrence: US)
  Receive Date: 20200512
  Receipt Date: 20200515
  Transmission Date: 20200714
  Serious: No
  Sender: FDA-Public Use
  Company Number: NVSC2020US125564

PATIENT
  Sex: Male

DRUGS (2)
  1. PROMACTA [Suspect]
     Active Substance: ELTROMBOPAG OLAMINE
     Indication: IMMUNODEFICIENCY COMMON VARIABLE
     Dosage: 12.5 MG, QD
     Route: 065
     Dates: start: 20191113
  2. PROMACTA [Suspect]
     Active Substance: ELTROMBOPAG OLAMINE
     Indication: LIVER TRANSPLANT

REACTIONS (2)
  - Product use in unapproved indication [Unknown]
  - Viral infection [Unknown]
